FAERS Safety Report 14539472 (Version 1)
Quarter: 2018Q1

REPORT INFORMATION
  Report Type: Spontaneous
  Country: US (occurrence: US)
  Receive Date: 20180215
  Receipt Date: 20180215
  Transmission Date: 20180509
  Serious: Yes (Disabling, Other)
  Sender: FDA-Public Use
  Company Number: None

PATIENT
  Age: 71 Year
  Sex: Female
  Weight: 130.5 kg

DRUGS (22)
  1. LATANOPROST. [Concomitant]
     Active Substance: LATANOPROST
  2. METOPROLOL TARTRATE. [Concomitant]
     Active Substance: METOPROLOL TARTRATE
  3. CLONAZEPAM. [Concomitant]
     Active Substance: CLONAZEPAM
  4. LISINOPRIL. [Concomitant]
     Active Substance: LISINOPRIL
  5. FLUOROMETHOLONE. [Concomitant]
     Active Substance: FLUOROMETHOLONE
  6. TRAMADOL. [Concomitant]
     Active Substance: TRAMADOL
  7. ULORIC [Concomitant]
     Active Substance: FEBUXOSTAT
  8. AUSTEDO [Concomitant]
     Active Substance: DEUTETRABENAZINE
  9. LAXATIVES [Concomitant]
     Active Substance: UNSPECIFIED INGREDIENT
  10. RANITIDINE 300 MG 1 TAB PO BID [Suspect]
     Active Substance: RANITIDINE
     Indication: ABDOMINAL DISCOMFORT
     Dosage: ?          QUANTITY:120 TABLET(S);?
     Route: 048
     Dates: start: 20170724, end: 20180207
  11. CLOPIDOGREL BISULFATE. [Concomitant]
     Active Substance: CLOPIDOGREL BISULFATE
  12. PREDNISONE. [Concomitant]
     Active Substance: PREDNISONE
  13. STOOL SOFTENER (DOCUSATE) [Concomitant]
     Active Substance: DOCUSATE
  14. SULFASALAZINE. [Concomitant]
     Active Substance: SULFASALAZINE
  15. FOLIC ACID. [Concomitant]
     Active Substance: FOLIC ACID
  16. DOCUSATE NA [Concomitant]
     Active Substance: DOCUSATE
  17. RANITIDINE. [Concomitant]
     Active Substance: RANITIDINE
  18. TYLENOL [Concomitant]
     Active Substance: ACETAMINOPHEN
  19. SPIRONOLACTONE. [Concomitant]
     Active Substance: SPIRONOLACTONE
  20. ASPIRIN. [Concomitant]
     Active Substance: ASPIRIN
  21. CHOLECALCIFEROL (VITD3) [Concomitant]
  22. SODIUM CHLORIDE EYE ONIMENT [Concomitant]

REACTIONS (1)
  - Tardive dyskinesia [None]

NARRATIVE: CASE EVENT DATE: 20170724
